FAERS Safety Report 8701479 (Version 2)
Quarter: 2013Q4

REPORT INFORMATION
  Report Type: Spontaneous
  Country: US (occurrence: US)
  Receive Date: 20120802
  Receipt Date: 20131105
  Transmission Date: 20140711
  Serious: Yes (Hospitalization)
  Sender: FDA-Public Use
  Company Number: US-009507513-1207USA011274

PATIENT
  Age: 61 Year
  Sex: Male

DRUGS (1)
  1. ZOCOR [Suspect]
     Dosage: UNK
     Route: 048

REACTIONS (6)
  - Joint crepitation [Unknown]
  - Fall [Unknown]
  - Tendon pain [Unknown]
  - Weight bearing difficulty [Unknown]
  - Tendon rupture [Unknown]
  - Arthralgia [Unknown]
